FAERS Safety Report 7049996-2 (Version None)
Quarter: 2010Q4

REPORT INFORMATION
  Report Type: 
  Country: None (occurrence: None)
  Receive Date: 20101012
  Receipt Date: 20100923
  Transmission Date: 20110411
  Serious: Yes (Death, Hospitalization)
  Sender: FDA-Public Use
  Company Number: 2010003409

PATIENT
  Age: 58 Year
  Sex: Female
  Weight: 81.6475 kg

DRUGS (2)
  1. ERLOTINIB HYDROCHLORIDE [Suspect]
     Indication: PANCREATIC CARCINOMA
     Dosage: (150 MG, QD), ORAL
     Route: 048
     Dates: start: 20100719, end: 20100818
  2. SORAFENIB (TABLET) [Suspect]
     Indication: PANCREATIC CARCINOMA
     Dosage: (400 MG, BID), ORAL
     Route: 048
     Dates: start: 20100719, end: 20100818

REACTIONS (4)
  - ACUTE RESPIRATORY FAILURE [None]
  - LEUKOCYTOSIS [None]
  - LUNG INFILTRATION [None]
  - SPINAL COMPRESSION FRACTURE [None]
